FAERS Safety Report 7025326-7 (Version None)
Quarter: 2010Q4

REPORT INFORMATION
  Report Type: 
  Country: None (occurrence: None)
  Receive Date: 20101001
  Receipt Date: 20100826
  Transmission Date: 20110411
  Serious: Yes (Hospitalization)
  Sender: FDA-Public Use
  Company Number: PHHY2010AU57289

PATIENT
  Sex: Female

DRUGS (2)
  1. CLOZARIL [Suspect]
     Dosage: 350 MG, UNK
     Dates: start: 20020612
  2. CLOZARIL [Suspect]
     Dosage: 425 MG, UNK

REACTIONS (2)
  - MENTAL IMPAIRMENT [None]
  - TREATMENT NONCOMPLIANCE [None]
